FAERS Safety Report 15191290 (Version 1)
Quarter: 2018Q3

REPORT INFORMATION
  Report Type: Spontaneous
  Country: US (occurrence: US)
  Receive Date: 20180625
  Receipt Date: 20180625
  Transmission Date: 20181010
  Serious: Yes (Death)
  Sender: FDA-Public Use
  Company Number: None

PATIENT
  Age: 54 Year
  Sex: Male

DRUGS (16)
  1. OMEPRAZOLE. [Concomitant]
     Active Substance: OMEPRAZOLE
  2. PREZISTA [Concomitant]
     Active Substance: DARUNAVIR ETHANOLATE
  3. NEURONTIN [Concomitant]
     Active Substance: GABAPENTIN
  4. SELZENTRY [Concomitant]
     Active Substance: MARAVIROC
  5. LYRICA [Concomitant]
     Active Substance: PREGABALIN
  6. LOMOTIL [Concomitant]
     Active Substance: ATROPINE SULFATE\DIPHENOXYLATE HYDROCHLORIDE
  7. RANITIDINE. [Concomitant]
     Active Substance: RANITIDINE
  8. SYMBICORT [Concomitant]
     Active Substance: BUDESONIDE\FORMOTEROL FUMARATE DIHYDRATE
  9. INTELENCE [Concomitant]
     Active Substance: ETRAVIRINE
  10. PRAVASTATIN. [Concomitant]
     Active Substance: PRAVASTATIN
  11. DRISDOL [Concomitant]
     Active Substance: ERGOCALCIFEROL
  12. ALLOPRUINOL [Concomitant]
  13. EPIVIR [Concomitant]
     Active Substance: LAMIVUDINE
  14. NORVIR [Concomitant]
     Active Substance: RITONAVIR
  15. TENOFOVIR 300 MG [Suspect]
     Active Substance: TENOFOVIR
     Indication: HIV INFECTION
     Route: 048
     Dates: start: 20140328, end: 20180530
  16. PROAIR HFA [Concomitant]
     Active Substance: ALBUTEROL SULFATE

REACTIONS (1)
  - Death [None]

NARRATIVE: CASE EVENT DATE: 20180202
